FAERS Safety Report 10017301 (Version 1)
Quarter: 2014Q1

REPORT INFORMATION
  Report Type: Spontaneous
  Country: US (occurrence: None)
  Receive Date: 20140313
  Receipt Date: 20140313
  Transmission Date: 20141002
  Serious: Yes (Life-Threatening, Hospitalization, Disabling, Other)
  Sender: FDA-Public Use
  Company Number: None

PATIENT
  Age: 86 Year
  Sex: Male

DRUGS (1)
  1. MYRBETRIQ [Suspect]
     Indication: POLLAKIURIA
     Dosage: 1 ONCE DAILY?8-9 MONTHS / 1 YEAR
     Route: 048

REACTIONS (1)
  - Urinary tract infection [None]
